FAERS Safety Report 9186468 (Version 3)
Quarter: 2013Q3

REPORT INFORMATION
  Report Type: Spontaneous
  Country: JP (occurrence: JP)
  Receive Date: 20130325
  Receipt Date: 20130905
  Transmission Date: 20140515
  Serious: Yes (Death, Hospitalization, Other)
  Sender: FDA-Public Use
  Company Number: PHHY2013JP028052

PATIENT
  Age: 72 Year
  Sex: Female

DRUGS (3)
  1. GLIVEC [Suspect]
     Indication: CHRONIC MYELOID LEUKAEMIA
     Dosage: 400 MG, DAILY
     Route: 048
     Dates: start: 200507
  2. BLOPRESS [Concomitant]
     Dosage: 8 MG, UNK
     Route: 048
  3. TAKEPRON [Concomitant]
     Dosage: 15 MG, UNK
     Route: 048

REACTIONS (2)
  - Gallbladder cancer [Fatal]
  - Second primary malignancy [Fatal]
